FAERS Safety Report 22621214 (Version 1)
Quarter: 2023Q2

REPORT INFORMATION
  Report Type: Spontaneous
  Country: US (occurrence: None)
  Receive Date: 20230616
  Receipt Date: 20230616
  Transmission Date: 20230721
  Serious: Yes (Hospitalization)
  Sender: FDA-Public Use
  Company Number: None

PATIENT
  Sex: Female

DRUGS (9)
  1. CAPECITABINE [Suspect]
     Active Substance: CAPECITABINE
     Indication: Colon cancer
     Dosage: FREQUENCY : TWICE A DAY;?OTHER ROUTE : 14D ON 7D OFF;?
     Route: 050
  2. FERROUS [Concomitant]
  3. HYDROCODONE-ACETAMINOHEN [Concomitant]
  4. LASIX [Concomitant]
     Active Substance: FUROSEMIDE
  5. MULTIVITAMIN [Concomitant]
  6. NORCO [Concomitant]
     Active Substance: ACETAMINOPHEN\HYDROCODONE BITARTRATE
  7. POTASSIUM [Concomitant]
  8. TRAMADOL [Concomitant]
     Active Substance: TRAMADOL
  9. VITAMIN C [Concomitant]
     Active Substance: ASCORBIC ACID

REACTIONS (2)
  - Skin infection [None]
  - Soft tissue infection [None]
